FAERS Safety Report 21113327 (Version 1)
Quarter: 2022Q3

REPORT INFORMATION
  Report Type: Spontaneous
  Country: US (occurrence: None)
  Receive Date: 20220721
  Receipt Date: 20220721
  Transmission Date: 20221026
  Serious: Yes (Life-Threatening, Hospitalization, Disabling, Other)
  Sender: FDA-Public Use
  Company Number: None

PATIENT
  Age: 34 Year
  Sex: Female
  Weight: 84.6 kg

DRUGS (3)
  1. MAGNESIUM CITRATE LEMON [Suspect]
     Active Substance: MAGNESIUM CITRATE
     Indication: Colonoscopy
     Dosage: OTHER QUANTITY : 30 OUNCE(S);?OTHER FREQUENCY : TAKEN 3 TIMES/WEEK;?
     Route: 048
     Dates: start: 20220320, end: 20220331
  2. SERTRALINE 100MG/ ATOMOXETINE 80MG [Concomitant]
  3. MULTIVITAMIN [Concomitant]

REACTIONS (7)
  - Abdominal pain [None]
  - Diarrhoea [None]
  - Pyrexia [None]
  - Anal incontinence [None]
  - Sepsis [None]
  - Clostridium difficile colitis [None]
  - Appendicitis [None]

NARRATIVE: CASE EVENT DATE: 20220401
